FAERS Safety Report 6679032-9 (Version None)
Quarter: 2010Q2

REPORT INFORMATION
  Report Type: 
  Country: None (occurrence: None)
  Receive Date: 20100413
  Receipt Date: 20100316
  Transmission Date: 20101027
  Serious: Yes (Other)
  Sender: FDA-Public Use
  Company Number: PHHY2010ES16660

PATIENT
  Age: 60 Year
  Sex: Male

DRUGS (2)
  1. TRILEPTAL [Suspect]
     Indication: COGNITIVE DISORDER
     Dosage: 1800 MG, UNK
     Route: 048
  2. EXELON [Suspect]
     Indication: COGNITIVE DISORDER
     Dosage: 9.5 MG, DAILY
     Route: 062

REACTIONS (5)
  - DYSKINESIA [None]
  - ELECTROLYTE IMBALANCE [None]
  - MUSCLE SPASMS [None]
  - MUSCULAR WEAKNESS [None]
  - RENAL IMPAIRMENT [None]
